FAERS Safety Report 18775244 (Version 1)
Quarter: 2021Q1

REPORT INFORMATION
  Report Type: Report from Study
  Country: IT (occurrence: IT)
  Receive Date: 20210122
  Receipt Date: 20210122
  Transmission Date: 20210419
  Serious: Yes (Hospitalization, Other)
  Sender: FDA-Public Use
  Company Number: IT-AMGEN-ITACT2021008329

PATIENT
  Age: 42 Year
  Sex: Female

DRUGS (18)
  1. ARA?C [Suspect]
     Active Substance: CYTARABINE
     Indication: PROPHYLAXIS
     Dosage: 50 MILLIGRAM
     Route: 037
     Dates: start: 20201124
  2. METHOTREXATE. [Suspect]
     Active Substance: METHOTREXATE
     Indication: PROPHYLAXIS
     Dosage: 12.5 MILLIGRAM
     Route: 037
     Dates: start: 20201124
  3. FLUCONAZOLO [Concomitant]
     Dosage: 200 MILLIGRAM
  4. ACICLOVIR [Concomitant]
     Active Substance: ACYCLOVIR
     Dosage: 800 MG 1/2 C X2 DAY
  5. BLINATUMOMAB [Suspect]
     Active Substance: BLINATUMOMAB
     Dosage: 9 MICROGRAM, QD
     Route: 042
     Dates: start: 20201201, end: 20201207
  6. DESAMETASONE [Suspect]
     Active Substance: DEXAMETHASONE
     Dosage: 16 MILLIGRAM, QD (FOR 4 DAYS)
     Route: 042
     Dates: start: 20201201, end: 20201204
  7. BACTRIM [Concomitant]
     Active Substance: SULFAMETHOXAZOLE\TRIMETHOPRIM
     Dosage: 1 DOSAGE FORM, BID (2 DAYS A WEEK)
  8. BLINATUMOMAB [Suspect]
     Active Substance: BLINATUMOMAB
     Indication: ACUTE LYMPHOCYTIC LEUKAEMIA
     Dosage: UNK
     Route: 042
  9. BLINATUMOMAB [Suspect]
     Active Substance: BLINATUMOMAB
     Dosage: 28 MICROGRAM, QD
     Route: 042
     Dates: start: 20201125, end: 20201127
  10. DESAMETASONE [Suspect]
     Active Substance: DEXAMETHASONE
     Indication: PROPHYLAXIS
     Dosage: 4 MILLIGRAM
     Route: 037
     Dates: start: 20201124
  11. VINCRISTINA [VINCRISTINE] [Suspect]
     Active Substance: VINCRISTINE
     Indication: ACUTE LYMPHOCYTIC LEUKAEMIA
     Dosage: UNK
     Route: 065
  12. BLINATUMOMAB [Suspect]
     Active Substance: BLINATUMOMAB
     Dosage: 28 MICROGRAM, QD
     Route: 042
     Dates: start: 20201208, end: 20201226
  13. DESAMETASONE [Suspect]
     Active Substance: DEXAMETHASONE
     Indication: ACUTE LYMPHOCYTIC LEUKAEMIA
     Dosage: 20 MILLIGRAM, QD (G1)
     Route: 042
     Dates: start: 20201125
  14. DESAMETASONE [Suspect]
     Active Substance: DEXAMETHASONE
     Dosage: 24 MILLIGRAM, QD (FOR 4 DAYS)
     Route: 042
     Dates: start: 20201127, end: 20201130
  15. LEVOXACIN [Concomitant]
     Active Substance: LEVOFLOXACIN
     Dosage: 500 MILLIGRAM, QD
  16. DESAMETASONE [Suspect]
     Active Substance: DEXAMETHASONE
     Dosage: 8 MILLIGRAM, QD (FOR 4 DAYS)
     Route: 042
     Dates: start: 20201205, end: 20201208
  17. LEVETIRACETAM. [Suspect]
     Active Substance: LEVETIRACETAM
     Indication: PROPHYLAXIS
     Dosage: 1 GRAM, QD
     Route: 048
     Dates: start: 20201124, end: 20201227
  18. PANTOPRAZOLO [Concomitant]
     Active Substance: PANTOPRAZOLE SODIUM
     Dosage: 1 DOSAGE FORM, QD

REACTIONS (1)
  - Neuropathy peripheral [Recovered/Resolved]

NARRATIVE: CASE EVENT DATE: 20201127
